FAERS Safety Report 22589505 (Version 1)
Quarter: 2023Q2

REPORT INFORMATION
  Report Type: Spontaneous
  Country: US (occurrence: US)
  Receive Date: 20230612
  Receipt Date: 20230612
  Transmission Date: 20230722
  Serious: Yes (Other)
  Sender: FDA-Public Use
  Company Number: US-UCBSA-2023029157

PATIENT
  Age: 22 Month
  Sex: Male

DRUGS (1)
  1. KEPPRA [Suspect]
     Active Substance: LEVETIRACETAM
     Indication: Product used for unknown indication
     Dosage: UNK

REACTIONS (4)
  - Poisoning [Unknown]
  - Fatigue [Unknown]
  - Accidental exposure to product by child [Unknown]
  - Product storage error [Unknown]

NARRATIVE: CASE EVENT DATE: 20211106
